FAERS Safety Report 10397647 (Version 2)
Quarter: 2014Q3

REPORT INFORMATION
  Report Type: Spontaneous
  Country: US (occurrence: US)
  Receive Date: 20140821
  Receipt Date: 20140828
  Transmission Date: 20150326
  Serious: No
  Sender: FDA-Public Use
  Company Number: US-ASTRAZENECA-2014SE61810

PATIENT
  Sex: Female

DRUGS (1)
  1. PULMICORT FLEXHALER [Suspect]
     Active Substance: BUDESONIDE
     Dosage: 1 PUFF AT NIGHT
     Route: 055
     Dates: start: 2011

REACTIONS (4)
  - Dizziness [Unknown]
  - Nervousness [Unknown]
  - Feeling abnormal [Unknown]
  - Off label use [Unknown]
